FAERS Safety Report 9696984 (Version 5)
Quarter: 2014Q2

REPORT INFORMATION
  Report Type: Report from Study
  Country: NL (occurrence: NL)
  Receive Date: 20131119
  Receipt Date: 20140404
  Transmission Date: 20141212
  Serious: Yes (Death)
  Sender: FDA-Public Use
  Company Number: NL-EXELIXIS-XL18413003663

PATIENT
  Age: 83 Year
  Sex: Male
  Weight: 78 kg

DRUGS (10)
  1. XL184 [Suspect]
     Indication: PROSTATE CANCER
     Dosage: 60 MG, QD
     Route: 048
     Dates: start: 20130828, end: 20131030
  2. XL184 [Suspect]
     Dosage: 40 MG, QD
     Route: 048
     Dates: start: 20131031, end: 20131101
  3. XL184 [Suspect]
     Indication: PROSTATE CANCER
     Dosage: 5 MG, BID
     Route: 048
     Dates: start: 20130828, end: 20131101
  4. ZOLADEX [Concomitant]
  5. FINASTERIDE [Concomitant]
  6. BISOPROLOL [Concomitant]
  7. NIFEDIPINE [Concomitant]
  8. DIPYRIDAMOLE [Concomitant]
  9. ACETYLSALICYLIC ACID [Concomitant]
  10. LOPERAMIDE [Concomitant]

REACTIONS (1)
  - Sudden death [Fatal]
